FAERS Safety Report 9517532 (Version 1)
Quarter: 2013Q3

REPORT INFORMATION
  Report Type: Spontaneous
  Country: DE (occurrence: DE)
  Receive Date: 20130911
  Receipt Date: 20130911
  Transmission Date: 20140515
  Serious: Yes (Other)
  Sender: FDA-Public Use
  Company Number: DE-ROCHE-1269892

PATIENT
  Sex: Female

DRUGS (2)
  1. HERCEPTIN [Suspect]
     Indication: PRODUCT USED FOR UNKNOWN INDICATION
     Route: 042
     Dates: start: 201207, end: 201303
  2. ANASTROZOL [Concomitant]

REACTIONS (41)
  - Angina pectoris [Unknown]
  - Chest discomfort [Unknown]
  - Blood pressure fluctuation [Not Recovered/Not Resolved]
  - Intervertebral disc protrusion [Not Recovered/Not Resolved]
  - Cardiac failure [Unknown]
  - Fatigue [Not Recovered/Not Resolved]
  - Chills [Unknown]
  - Bone pain [Unknown]
  - Muscle spasms [Unknown]
  - Myalgia [Unknown]
  - Abdominal distension [Unknown]
  - Joint swelling [Unknown]
  - Joint swelling [Unknown]
  - Arthralgia [Unknown]
  - Feeling abnormal [Unknown]
  - Thinking abnormal [Unknown]
  - Disturbance in attention [Not Recovered/Not Resolved]
  - Panic attack [Recovered/Resolved]
  - Dizziness [Recovered/Resolved]
  - Gait disturbance [Recovered/Resolved]
  - Dyspnoea [Unknown]
  - Palpitations [Unknown]
  - Bladder disorder [Unknown]
  - Sleep disorder [Unknown]
  - Tremor [Unknown]
  - Tinnitus [Unknown]
  - Dysgeusia [Unknown]
  - Pruritus [Unknown]
  - Polyneuropathy [Not Recovered/Not Resolved]
  - Dry skin [Unknown]
  - Conjunctivitis [Unknown]
  - Mucosal dryness [Unknown]
  - Constipation [Unknown]
  - Diarrhoea [Unknown]
  - Haemorrhoids [Unknown]
  - Nail disorder [Unknown]
  - Joint stiffness [Not Recovered/Not Resolved]
  - Memory impairment [Not Recovered/Not Resolved]
  - Headache [Not Recovered/Not Resolved]
  - Arthritis [Not Recovered/Not Resolved]
  - Depressed mood [Not Recovered/Not Resolved]
